FAERS Safety Report 6141906-5 (Version None)
Quarter: 2009Q2

REPORT INFORMATION
  Report Type: 
  Country: None (occurrence: None)
  Receive Date: 20090402
  Receipt Date: 20090320
  Transmission Date: 20091009
  Serious: Yes (Hospitalization)
  Sender: FDA-Public Use
  Company Number: RU-ROCHE-570245

PATIENT
  Sex: Male
  Weight: 72 kg

DRUGS (8)
  1. PEG-INTERFERON ALFA 2A (RO 25-8310) [Suspect]
     Dosage: PER PROTOCOL: AFTER 12 WEEKS OF TREATMENT ALL PATIENTS RECEIVED 180 UG WEEKLY DOSE.
     Route: 058
     Dates: start: 20071107, end: 20080603
  2. PEG-INTERFERON ALFA 2A (RO 25-8310) [Suspect]
     Dosage: FREQUENCY- WEEKLY. DRUG WAS RESTARTED.
     Route: 058
     Dates: start: 20080619
  3. PEG-INTERFERON ALFA 2A (RO 25-8310) [Suspect]
     Dosage: PER PROTOCOL: DOSE BLINDED FOR FIRST 12 WEEKS OF STUDY.
     Route: 058
     Dates: start: 20070731, end: 20071031
  4. RIBAVIRIN [Suspect]
     Dosage: DOSE- BLINDED. FREQUENCY- DAILY.DRUG WAS TEMPORARILY INTERRUPTED.
     Route: 048
     Dates: start: 20070731, end: 20080610
  5. RIBAVIRIN [Suspect]
     Dosage: DRUG WAS RESTARTED
     Route: 048
     Dates: start: 20080619
  6. CEFAZOLINUM [Concomitant]
     Dates: start: 20080610, end: 20080615
  7. METRONIDAZOLUM [Concomitant]
     Dates: start: 20080610, end: 20080615
  8. KETONAL [Concomitant]

REACTIONS (3)
  - ABSCESS [None]
  - APPENDICITIS [None]
  - PELVIC ABSCESS [None]
